FAERS Safety Report 4504345-6 (Version None)
Quarter: 2004Q4

REPORT INFORMATION
  Report Type: 
  Country: None (occurrence: None)
  Receive Date: 20041118
  Receipt Date: 20041110
  Transmission Date: 20050328
  Serious: Yes (Other)
  Sender: FDA-Public Use
  Company Number: PHEH2004US12141

PATIENT
  Age: 33 Year
  Sex: Female

DRUGS (5)
  1. ZELNORM [Suspect]
     Indication: GASTROINTESTINAL MOTILITY DISORDER
     Dosage: 6 MG, TID
     Route: 048
     Dates: start: 20041025, end: 20041031
  2. PREVACID [Concomitant]
     Indication: GASTROOESOPHAGEAL REFLUX DISEASE
  3. EFFEXOR [Concomitant]
     Indication: MIGRAINE
  4. CORGARD [Concomitant]
     Indication: MIGRAINE
  5. MIRALAX [Concomitant]
     Indication: GASTROINTESTINAL MOTILITY DISORDER

REACTIONS (6)
  - ASTHENIA [None]
  - DEHYDRATION [None]
  - DIARRHOEA [None]
  - MALAISE [None]
  - TREMOR [None]
  - VOMITING [None]
